FAERS Safety Report 5885329-2 (Version None)
Quarter: 2008Q3

REPORT INFORMATION
  Report Type: 
  Country: None (occurrence: None)
  Receive Date: 20080915
  Receipt Date: 20080915
  Transmission Date: 20090109
  Serious: Yes (Hospitalization)
  Sender: FDA-Public Use
  Company Number: None

PATIENT
  Age: 61 Year
  Sex: Male
  Weight: 106.5953 kg

DRUGS (1)
  1. PHOSPHO-SODA ORAL SALINE FLEET [Suspect]
     Indication: COLONOSCOPY
     Dosage: 45 ML 2 TIMES AT 10 HRS PO
     Route: 048
     Dates: start: 20080129, end: 20080130

REACTIONS (2)
  - NEPHROPATHY [None]
  - RENAL FAILURE [None]
